FAERS Safety Report 25550988 (Version 1)
Quarter: 2025Q3

REPORT INFORMATION
  Report Type: Spontaneous
  Country: US (occurrence: US)
  Receive Date: 20250714
  Receipt Date: 20250714
  Transmission Date: 20251020
  Serious: No
  Sender: INTRA-CELLULAR THERAPIES
  Company Number: US-INTRA-CELLULAR THERAPIES, INC.-2025ICT00912

PATIENT
  Age: 65 Year
  Sex: Female

DRUGS (5)
  1. CAPLYTA [Suspect]
     Active Substance: LUMATEPERONE
     Indication: Bipolar II disorder
  2. UNSPECIFIED INGREDIENT [Concomitant]
     Active Substance: UNSPECIFIED INGREDIENT
  3. LAMICTAL [Concomitant]
     Active Substance: LAMOTRIGINE
  4. LUNESTA [Concomitant]
     Active Substance: ESZOPICLONE
  5. UNSPECIFIED GLP-1 [Concomitant]

REACTIONS (1)
  - Neutrophil count decreased [Recovering/Resolving]
